FAERS Safety Report 11132147 (Version 2)
Quarter: 2015Q2

REPORT INFORMATION
  Report Type: Report from Study
  Country: US (occurrence: US)
  Receive Date: 20150522
  Receipt Date: 20150618
  Transmission Date: 20150821
  Serious: Yes (Hospitalization)
  Sender: FDA-Public Use
  Company Number: US-SA-2014SA142637

PATIENT
  Age: 57 Year
  Sex: Female

DRUGS (1)
  1. AUBAGIO [Suspect]
     Active Substance: TERIFLUNOMIDE
     Indication: MULTIPLE SCLEROSIS
     Route: 048
     Dates: start: 20140808, end: 20150111

REACTIONS (7)
  - Scar [Recovering/Resolving]
  - Cognitive disorder [Unknown]
  - Mobility decreased [Unknown]
  - Memory impairment [Unknown]
  - Dermatitis acneiform [Recovering/Resolving]
  - Speech disorder [Unknown]
  - Urticaria [Unknown]

NARRATIVE: CASE EVENT DATE: 2014
